FAERS Safety Report 16975695 (Version 1)
Quarter: 2019Q4

REPORT INFORMATION
  Report Type: Spontaneous
  Country: US (occurrence: US)
  Receive Date: 20190913
  Receipt Date: 20190913
  Transmission Date: 20200122
  Serious: Yes (Hospitalization)
  Sender: FDA-Public Use
  Company Number: None

PATIENT
  Age: 80 Year
  Sex: Female
  Weight: 56.2 kg

DRUGS (1)
  1. PALBOCICLIB (PD-0332991) [Suspect]
     Active Substance: PALBOCICLIB
     Dates: end: 20190903

REACTIONS (10)
  - Dyspnoea [None]
  - Bronchial wall thickening [None]
  - Cough [None]
  - Aspiration [None]
  - Emphysema [None]
  - Lung opacity [None]
  - Lung consolidation [None]
  - Electrocardiogram T wave inversion [None]
  - Cardiac septal hypertrophy [None]
  - Pulmonary oedema [None]

NARRATIVE: CASE EVENT DATE: 20190903
